FAERS Safety Report 10204915 (Version 2)
Quarter: 2014Q2

REPORT INFORMATION
  Report Type: Spontaneous
  Country: JP (occurrence: JP)
  Receive Date: 20140529
  Receipt Date: 20140603
  Transmission Date: 20141212
  Serious: Yes (Death, Other)
  Sender: FDA-Public Use
  Company Number: PHHY2014JP061466

PATIENT
  Age: 59 Year
  Sex: Male
  Weight: 50 kg

DRUGS (8)
  1. ETOPOSIDE [Suspect]
     Indication: STEM CELL TRANSPLANT
     Dosage: 500 MG/M2, (DAY-6 TO DAY-4)
     Route: 041
  2. CARBOPLATIN [Suspect]
     Indication: STEM CELL TRANSPLANT
     Dosage: 300 MG/M2, (FROM DAY-7 TO DAY-4)
     Route: 041
  3. MEROPENEM [Suspect]
     Dosage: 0.5 G, BID
  4. RANIMUSTINE [Suspect]
     Indication: STEM CELL TRANSPLANT
     Dosage: 200 MG/M2, DAY-8 AND DAY-3
  5. CYCLOPHOSPHAMIDE [Suspect]
     Indication: STEM CELL TRANSPLANT
     Dosage: 40 MG/KG, DAY-3 AND DAY-2
  6. MICAFUNGIN [Suspect]
     Dosage: 150 MG, DAILY
  7. LINEZOLID [Suspect]
     Dosage: 600 MG, BID
  8. FILGRASTIM [Concomitant]
     Route: 041

REACTIONS (8)
  - Neutropenic colitis [Fatal]
  - Ileus paralytic [Fatal]
  - Abdominal pain [Fatal]
  - Pyrexia [Fatal]
  - Diarrhoea [Fatal]
  - Pleural effusion [Unknown]
  - Prerenal failure [Unknown]
  - Inflammation [Unknown]
